FAERS Safety Report 12485802 (Version 3)
Quarter: 2016Q3

REPORT INFORMATION
  Report Type: Report from Study
  Country: US (occurrence: US)
  Receive Date: 20160621
  Receipt Date: 20160812
  Transmission Date: 20161109
  Serious: Yes (Death, Hospitalization, Other)
  Sender: FDA-Public Use
  Company Number: US-009507513-1606USA003708

PATIENT
  Age: 56 Year
  Sex: Male
  Weight: 88.5 kg

DRUGS (2)
  1. AVASTIN [Concomitant]
     Active Substance: BEVACIZUMAB
     Indication: PROPHYLAXIS
     Dosage: UNK
     Route: 042
     Dates: start: 20150828, end: 20160428
  2. KEYTRUDA [Suspect]
     Active Substance: PEMBROLIZUMAB
     Indication: GLIOBLASTOMA MULTIFORME
     Dosage: 177.5 MG, EVERY 3 WEEKS
     Route: 042
     Dates: start: 20151218, end: 20160428

REACTIONS (3)
  - Malignant neoplasm progression [Fatal]
  - Product use issue [Unknown]
  - Surgery [Fatal]

NARRATIVE: CASE EVENT DATE: 2016
